FAERS Safety Report 6773658-X (Version None)
Quarter: 2010Q2

REPORT INFORMATION
  Report Type: 
  Country: None (occurrence: None)
  Receive Date: 20100615
  Receipt Date: 20100615
  Transmission Date: 20101027
  Serious: Yes (Other)
  Sender: FDA-Public Use
  Company Number: None

PATIENT
  Age: 79 Year
  Sex: Male
  Weight: 81.6475 kg

DRUGS (1)
  1. LUMIGAN [Suspect]
     Indication: GLAUCOMA
     Dosage: ONE DROP BID OPHTHALMIC
     Route: 047
     Dates: start: 20090518, end: 20100309

REACTIONS (4)
  - DEFORMITY [None]
  - EMOTIONAL DISORDER [None]
  - EYELID DISORDER [None]
  - LIPOATROPHY [None]
